FAERS Safety Report 10041239 (Version 2)
Quarter: 2014Q2

REPORT INFORMATION
  Report Type: Spontaneous
  Country: GB (occurrence: None)
  Receive Date: 20140325
  Receipt Date: 20140618
  Transmission Date: 20141212
  Serious: Yes (Life-Threatening)
  Sender: FDA-Public Use
  Company Number: 2249827

PATIENT
  Age: 66 Year
  Sex: Female

DRUGS (13)
  1. PACLITAXEL [Suspect]
     Indication: OVARIAN CANCER STAGE III
     Dosage: (NOT OTHERWISE SPECIFIED)
     Route: 042
     Dates: start: 20120221, end: 20140221
  2. DILTIAZEM HYDROCHLORIDE [Concomitant]
  3. AMLODIPINE [Concomitant]
  4. CANDESARTAN [Concomitant]
  5. CARBOPLATIN [Concomitant]
  6. CHLORPHENAMINE [Concomitant]
  7. DEXAMETHASONE [Concomitant]
  8. LANSOPRAZOLE [Concomitant]
  9. METFORMIN [Concomitant]
  10. METOCLOPRAMIDE [Concomitant]
  11. ONDANSETRON [Concomitant]
  12. PARACETAMOL [Concomitant]
  13. SENNA [Concomitant]

REACTIONS (5)
  - Back pain [None]
  - Hypersensitivity [None]
  - Nausea [None]
  - Flushing [None]
  - Feeling hot [None]
